FAERS Safety Report 16258288 (Version 5)
Quarter: 2019Q2

REPORT INFORMATION
  Report Type: Report from Study
  Country: JP (occurrence: JP)
  Receive Date: 20190430
  Receipt Date: 20190620
  Transmission Date: 20190711
  Serious: Yes (Death)
  Sender: FDA-Public Use
  Company Number: JP-ASTRAZENECA-2019SE39236

PATIENT
  Age: 76 Year
  Sex: Female
  Weight: 61 kg

DRUGS (1)
  1. LYNPARZA [Suspect]
     Active Substance: OLAPARIB
     Indication: OVARIAN CANCER
     Route: 048
     Dates: start: 20180516, end: 20180712

REACTIONS (10)
  - Renal impairment [Not Recovered/Not Resolved]
  - Atrial fibrillation [Fatal]
  - Cardiac failure acute [Fatal]
  - Myelodysplastic syndrome [Fatal]
  - Infection [Unknown]
  - Pericardial effusion [Fatal]
  - Pyrexia [Recovered/Resolved]
  - Mouth ulceration [Unknown]
  - Blood pressure decreased [Unknown]
  - Anaemia [Recovered/Resolved]

NARRATIVE: CASE EVENT DATE: 2018
